FAERS Safety Report 8860445 (Version 1)
Quarter: 2012Q4

REPORT INFORMATION
  Report Type: 
  Country: RU (occurrence: RU)
  Receive Date: 20121025
  Receipt Date: 20121025
  Transmission Date: 20130627
  Serious: Yes (Hospitalization)
  Sender: FDA-Public Use
  Company Number: RU-BAYER-2012-110963

PATIENT
  Age: 61 Year
  Sex: Male

DRUGS (3)
  1. AVELOX [Suspect]
     Route: 042
  2. RINGER [SODIUM CHLORIDE] [Concomitant]
  3. ASCORBIC ACID [Concomitant]

REACTIONS (4)
  - Jaundice [Recovering/Resolving]
  - Hepatomegaly [Recovering/Resolving]
  - Blood creatinine increased [Recovering/Resolving]
  - Blood urea increased [Recovering/Resolving]
